FAERS Safety Report 13448419 (Version 1)
Quarter: 2017Q2

REPORT INFORMATION
  Report Type: Report from Study
  Country: IL (occurrence: IL)
  Receive Date: 20170417
  Receipt Date: 20170417
  Transmission Date: 20170830
  Serious: Yes (Hospitalization)
  Sender: FDA-Public Use
  Company Number: IL-IPCA LABORATORIES LIMITED-IPC201704-000455

PATIENT
  Age: 33 Year
  Sex: Male

DRUGS (5)
  1. WARFARIN [Suspect]
     Active Substance: WARFARIN
     Indication: EMBOLISM VENOUS
  2. FLAXSEED [Suspect]
     Active Substance: FLAX SEED
  3. SAGE. [Suspect]
     Active Substance: SAGE
  4. OMEGA-3 FISH OIL [Suspect]
     Active Substance: FISH OIL\OMEGA-3 FATTY ACIDS
  5. CHAMOMILE [Suspect]
     Active Substance: CHAMOMILE

REACTIONS (3)
  - Drug interaction [Unknown]
  - Gastrointestinal haemorrhage [Unknown]
  - International normalised ratio increased [Unknown]
